FAERS Safety Report 11350575 (Version 1)
Quarter: 2015Q3

REPORT INFORMATION
  Report Type: Spontaneous
  Country: None (occurrence: None)
  Receive Date: 20150806
  Receipt Date: 20150806
  Transmission Date: 20151125
  Serious: No
  Sender: FDA-Public Use
  Company Number: None

PATIENT
  Age: 25 Year
  Sex: Male
  Weight: 83.92 kg

DRUGS (1)
  1. ICY HOT MEDICATED, ADVANCED RELIEF [Suspect]
     Active Substance: MENTHOL
     Indication: MUSCLE STRAIN
     Dates: start: 20150805

REACTIONS (2)
  - Application site burn [None]
  - Chemical injury [None]

NARRATIVE: CASE EVENT DATE: 20150805
